FAERS Safety Report 10330857 (Version 1)
Quarter: 2014Q3

REPORT INFORMATION
  Report Type: Spontaneous
  Country: GB (occurrence: GB)
  Receive Date: 20140722
  Receipt Date: 20140722
  Transmission Date: 20150326
  Serious: Yes (Hospitalization)
  Sender: FDA-Public Use
  Company Number: GB-SA-2014SA094910

PATIENT
  Sex: Female

DRUGS (1)
  1. FABRAZYME [Suspect]
     Active Substance: AGALSIDASE BETA
     Indication: FABRY^S DISEASE
     Route: 042

REACTIONS (6)
  - Hypoaesthesia [Unknown]
  - Hypotension [Unknown]
  - Fatigue [Unknown]
  - VIIth nerve paralysis [Unknown]
  - Migraine [Unknown]
  - Headache [Unknown]
